FAERS Safety Report 7043806-5 (Version None)
Quarter: 2010Q4

REPORT INFORMATION
  Report Type: 
  Country: None (occurrence: None)
  Receive Date: 20101012
  Receipt Date: 20101012
  Transmission Date: 20110411
  Serious: Yes (Other)
  Sender: FDA-Public Use
  Company Number: None

PATIENT
  Sex: Female
  Weight: 54.8852 kg

DRUGS (2)
  1. OXYCONTIN [Suspect]
     Indication: LUMBAR SPINAL STENOSIS
     Dosage: 80 BID ORAL
     Route: 048
     Dates: start: 20100913, end: 20101010
  2. OXYCONTIN [Suspect]
     Indication: PAIN
     Dosage: 80 BID ORAL
     Route: 048
     Dates: start: 20100913, end: 20101010

REACTIONS (3)
  - HERPES ZOSTER [None]
  - RASH [None]
  - VOMITING [None]
